FAERS Safety Report 15479962 (Version 2)
Quarter: 2021Q2

REPORT INFORMATION
  Report Type: Spontaneous
  Country: DE (occurrence: DE)
  Receive Date: 20181009
  Receipt Date: 20210614
  Transmission Date: 20210716
  Serious: Yes (Other)
  Sender: FDA-Public Use
  Company Number: DE-GUERBET-DE-20180102

PATIENT
  Age: 50 Year
  Sex: Female
  Weight: 57 kg

DRUGS (3)
  1. CLARISCAN [Suspect]
     Active Substance: GADOTERATE MEGLUMINE
     Indication: MAGNETIC RESONANCE IMAGING
     Route: 042
     Dates: start: 20180515, end: 20180515
  2. DOTAREM [Suspect]
     Active Substance: GADOTERATE MEGLUMINE
     Indication: MAGNETIC RESONANCE IMAGING
     Route: 042
     Dates: start: 20170831, end: 20170831
  3. DOTAREM [Suspect]
     Active Substance: GADOTERATE MEGLUMINE
     Route: 042
     Dates: start: 20180320, end: 20180320

REACTIONS (26)
  - Muscle discomfort [Unknown]
  - Arthralgia [Recovering/Resolving]
  - Joint stiffness [Recovering/Resolving]
  - Memory impairment [Recovering/Resolving]
  - Muscle contracture [Unknown]
  - Myosclerosis [Recovering/Resolving]
  - Myalgia [Recovering/Resolving]
  - Piloerection [Recovering/Resolving]
  - Sleep disorder [Recovering/Resolving]
  - Muscle twitching [Recovering/Resolving]
  - Temperature intolerance [Recovering/Resolving]
  - Joint noise [Recovering/Resolving]
  - Aphasia [Recovering/Resolving]
  - Bone pain [Recovering/Resolving]
  - Dry eye [Recovering/Resolving]
  - Disturbance in attention [Recovering/Resolving]
  - Skin atrophy [Recovering/Resolving]
  - Skin induration [Recovering/Resolving]
  - Dizziness [Recovering/Resolving]
  - Gadolinium deposition disease [Recovering/Resolving]
  - Blood heavy metal increased [Recovering/Resolving]
  - Pruritus [Recovering/Resolving]
  - Skin hypertrophy [Recovering/Resolving]
  - Skin tightness [Recovering/Resolving]
  - Body temperature decreased [Recovering/Resolving]
  - Eye irritation [Recovering/Resolving]

NARRATIVE: CASE EVENT DATE: 20180321
